FAERS Safety Report 5689156-0 (Version None)
Quarter: 2008Q1

REPORT INFORMATION
  Report Type: 
  Country: None (occurrence: None)
  Receive Date: 20080331
  Receipt Date: 19940330
  Transmission Date: 20080703
  Serious: Yes (Death)
  Sender: FDA-Public Use
  Company Number: IT-ROCHE-940700065001

PATIENT
  Age: 72 Year
  Sex: Female

DRUGS (1)
  1. ROCEPHIN [Suspect]
     Indication: PNEUMONIA
     Route: 065

REACTIONS (1)
  - CARDIAC DISORDER [None]
